FAERS Safety Report 6498781-9 (Version None)
Quarter: 2009Q4

REPORT INFORMATION
  Report Type: 
  Country: None (occurrence: None)
  Receive Date: 20091215
  Receipt Date: 20091211
  Transmission Date: 20100525
  Serious: Yes (Death, Life-Threatening, Hospitalization, Other)
  Sender: FDA-Public Use
  Company Number: JP-JNJFOC-20091102065

PATIENT
  Sex: Female

DRUGS (13)
  1. RISPERDAL CONSTA [Suspect]
     Indication: SCHIZOPHRENIA
     Route: 030
     Dates: start: 20090710, end: 20091104
  2. RISPERDAL CONSTA [Suspect]
     Indication: PSYCHIATRIC SYMPTOM
     Route: 030
     Dates: start: 20090710, end: 20091104
  3. RISPERDAL [Suspect]
     Indication: PSYCHIATRIC SYMPTOM
     Route: 048
     Dates: end: 20091104
  4. RISPERDAL [Suspect]
     Indication: SCHIZOPHRENIA
     Route: 048
     Dates: start: 20091003, end: 20091104
  5. ESTAZOLAM [Suspect]
     Indication: SCHIZOPHRENIA
     Route: 048
     Dates: end: 20091104
  6. HALCION [Suspect]
     Indication: SCHIZOPHRENIA
     Route: 048
     Dates: end: 20091104
  7. VEGETAMIN-B [Suspect]
     Indication: SCHIZOPHRENIA
     Route: 048
     Dates: start: 20090925, end: 20091104
  8. SILECE [Suspect]
     Indication: SCHIZOPHRENIA
     Route: 048
     Dates: end: 20091104
  9. ISOSORBIDE DINITRATE [Suspect]
     Indication: ANGINA PECTORIS
     Route: 062
     Dates: start: 20040113, end: 20091106
  10. MAGNESIUM OXIDE [Suspect]
     Indication: CONSTIPATION
     Route: 048
     Dates: start: 19940710, end: 20011104
  11. DEPAS [Suspect]
     Indication: SPINAL OSTEOARTHRITIS
     Route: 048
     Dates: start: 20081014, end: 20091104
  12. JUVELA N [Suspect]
     Indication: HYPERLIPIDAEMIA
     Route: 048
     Dates: start: 20081027, end: 20090104
  13. EVISTA [Suspect]
     Indication: OSTEOPOROSIS
     Route: 048
     Dates: start: 20090925, end: 20091104

REACTIONS (13)
  - ALANINE AMINOTRANSFERASE INCREASED [None]
  - ASPARTATE AMINOTRANSFERASE INCREASED [None]
  - BLOOD LACTATE DEHYDROGENASE INCREASED [None]
  - BRAIN STEM INFARCTION [None]
  - CARDIO-RESPIRATORY ARREST [None]
  - DIET REFUSAL [None]
  - EMBOLISM [None]
  - INAPPROPRIATE SCHEDULE OF DRUG ADMINISTRATION [None]
  - INSOMNIA [None]
  - LOSS OF CONSCIOUSNESS [None]
  - PSYCHIATRIC SYMPTOM [None]
  - TREATMENT NONCOMPLIANCE [None]
  - WHITE BLOOD CELL COUNT INCREASED [None]
